FAERS Safety Report 9550537 (Version 10)
Quarter: 2014Q3

REPORT INFORMATION
  Report Type: Report from Study
  Country: US (occurrence: US)
  Receive Date: 20130924
  Receipt Date: 20140924
  Transmission Date: 20150326
  Serious: Yes (Hospitalization)
  Sender: FDA-Public Use
  Company Number: US-SANOFI-AVENTIS-2013SA030028

PATIENT
  Age: 71 Year
  Sex: Female
  Weight: 97.5 kg

DRUGS (7)
  1. XANAX [Concomitant]
     Active Substance: ALPRAZOLAM
  2. ZOLOFT [Concomitant]
     Active Substance: SERTRALINE HYDROCHLORIDE
  3. BACLOFEN. [Concomitant]
     Active Substance: BACLOFEN
  4. NEURONTIN [Concomitant]
     Active Substance: GABAPENTIN
     Dosage: FREQUENCY: 2-3 T/DAYS
  5. AUBAGIO [Suspect]
     Active Substance: TERIFLUNOMIDE
     Indication: MULTIPLE SCLEROSIS
     Route: 048
     Dates: start: 20130311
  6. GABAPENTIN. [Concomitant]
     Active Substance: GABAPENTIN
     Indication: PRODUCT USED FOR UNKNOWN INDICATION
     Route: 065
  7. AUBAGIO [Suspect]
     Active Substance: TERIFLUNOMIDE
     Indication: MULTIPLE SCLEROSIS
     Route: 048

REACTIONS (23)
  - Axillary pain [Not Recovered/Not Resolved]
  - Weight increased [Not Recovered/Not Resolved]
  - Blister [Recovered/Resolved]
  - Fatigue [Unknown]
  - Cough [Not Recovered/Not Resolved]
  - Peripheral swelling [Unknown]
  - Diarrhoea [Not Recovered/Not Resolved]
  - Alopecia [Not Recovered/Not Resolved]
  - Enuresis [Not Recovered/Not Resolved]
  - Neuropathy peripheral [Unknown]
  - Sinusitis [Unknown]
  - Drug dose omission [Unknown]
  - Blood pressure increased [Unknown]
  - Breast mass [Unknown]
  - Vitreous floaters [Not Recovered/Not Resolved]
  - Musculoskeletal stiffness [Not Recovered/Not Resolved]
  - Hypoaesthesia [Unknown]
  - Hyperhidrosis [Unknown]
  - Breast pain [Not Recovered/Not Resolved]
  - Pain [Not Recovered/Not Resolved]
  - Insomnia [Not Recovered/Not Resolved]
  - Blood glucose increased [Unknown]
  - Headache [Unknown]

NARRATIVE: CASE EVENT DATE: 2013
